FAERS Safety Report 19056926 (Version 1)
Quarter: 2021Q1

REPORT INFORMATION
  Report Type: Spontaneous
  Country: US (occurrence: US)
  Receive Date: 20210325
  Receipt Date: 20210325
  Transmission Date: 20210420
  Serious: No
  Sender: FDA-Public Use
  Company Number: ALC2020US005324

PATIENT

DRUGS (2)
  1. PAZEO [Suspect]
     Active Substance: OLOPATADINE HYDROCHLORIDE
     Indication: PRODUCT USED FOR UNKNOWN INDICATION
     Dosage: 1 GTT, (OU, QAM, PRN DISP: 1 BOTTLE REFILL: 6)
     Route: 047
  2. XIIDRA [Suspect]
     Active Substance: LIFITEGRAST
     Indication: PRODUCT USED FOR UNKNOWN INDICATION
     Dosage: 1 GTT, BID (EYE DROPS IN A DROPERETTE, OU)
     Route: 047

REACTIONS (3)
  - Hypersensitivity [Unknown]
  - Floppy eyelid syndrome [Unknown]
  - Intraocular pressure test abnormal [Unknown]
